FAERS Safety Report 22652128 (Version 1)
Quarter: 2023Q2

REPORT INFORMATION
  Report Type: Spontaneous
  Country: FR (occurrence: FR)
  Receive Date: 20230628
  Receipt Date: 20230628
  Transmission Date: 20230721
  Serious: Yes (Life-Threatening, Hospitalization)
  Sender: FDA-Public Use
  Company Number: None

PATIENT
  Age: 53 Year
  Sex: Female

DRUGS (8)
  1. FLUOXETINE HYDROCHLORIDE [Suspect]
     Active Substance: FLUOXETINE HYDROCHLORIDE
     Indication: Depression
     Dosage: 20 MG, UNKNOWN
     Route: 048
     Dates: end: 20230610
  2. FLUOXETINE HYDROCHLORIDE [Suspect]
     Active Substance: FLUOXETINE HYDROCHLORIDE
     Dosage: 400 MG
     Route: 048
     Dates: start: 20230610, end: 20230610
  3. HYDROCORTISONE ACEPONATE [Suspect]
     Active Substance: HYDROCORTISONE ACEPONATE
     Indication: Adrenal insufficiency
     Dosage: 15 MG, UNKNOWN
     Route: 065
     Dates: end: 20230610
  4. HYDROCORTISONE ACEPONATE [Suspect]
     Active Substance: HYDROCORTISONE ACEPONATE
     Dosage: 160 MG, UNKNOWN
     Route: 065
     Dates: start: 20230610, end: 20230610
  5. IRBESARTAN/HYDROCHLOROTHIAZIDE MYLAN [Concomitant]
     Indication: Hypertension
     Dosage: UNK
     Dates: start: 20230610, end: 20230610
  6. IRBESARTAN/HYDROCHLOROTHIAZIDE MYLAN [Concomitant]
     Dates: end: 20230610
  7. BISOPROLOL FUMARATE\PERINDOPRIL ARGININE [Concomitant]
     Active Substance: BISOPROLOL FUMARATE\PERINDOPRIL ARGININE
     Indication: Hypertension
     Dates: start: 20230610, end: 20230610
  8. BISOPROLOL FUMARATE\PERINDOPRIL ARGININE [Concomitant]
     Active Substance: BISOPROLOL FUMARATE\PERINDOPRIL ARGININE
     Dates: end: 20230610

REACTIONS (3)
  - Subarachnoid haemorrhage [Recovering/Resolving]
  - Encephalopathy [Recovered/Resolved]
  - Accidental overdose [Unknown]

NARRATIVE: CASE EVENT DATE: 20230612
